FAERS Safety Report 9890928 (Version 1)
Quarter: 2014Q1

REPORT INFORMATION
  Report Type: Spontaneous
  Country: IE (occurrence: None)
  Receive Date: 20140210
  Receipt Date: 20140210
  Transmission Date: 20141002
  Serious: Yes (Death)
  Sender: FDA-Public Use
  Company Number: 2014P1000863

PATIENT
  Sex: Male

DRUGS (2)
  1. LITHIUM [Suspect]
  2. CAPTOPRIL [Suspect]

REACTIONS (2)
  - Toxicity to various agents [None]
  - Multi-organ failure [None]
